FAERS Safety Report 14203385 (Version 2)
Quarter: 2018Q1

REPORT INFORMATION
  Report Type: Report from Study
  Country: None (occurrence: US)
  Receive Date: 20171120
  Receipt Date: 20180206
  Transmission Date: 20180508
  Serious: Yes (Other)
  Sender: FDA-Public Use
  Company Number: US-ABBVIE-17K-163-2163142-00

PATIENT
  Sex: Female

DRUGS (1)
  1. HUMIRA [Suspect]
     Active Substance: ADALIMUMAB
     Indication: RHEUMATOID ARTHRITIS
     Route: 058

REACTIONS (4)
  - Pancreatic neoplasm [Not Recovered/Not Resolved]
  - Wrong dose [Unknown]
  - Thyroid mass [Unknown]
  - Rheumatoid arthritis [Unknown]
